FAERS Safety Report 26001065 (Version 1)
Quarter: 2025Q4

REPORT INFORMATION
  Report Type: Spontaneous
  Country: CA (occurrence: CA)
  Receive Date: 20251105
  Receipt Date: 20251105
  Transmission Date: 20260118
  Serious: Yes (Hospitalization)
  Sender: NOVARTIS
  Company Number: CA-002147023-NVSC2025CA168191

PATIENT
  Age: 2 Month
  Sex: Female

DRUGS (17)
  1. TRAMETINIB [Suspect]
     Active Substance: TRAMETINIB
     Indication: Noonan syndrome
     Dosage: 0.01875 MG/KG/DAY
     Route: 065
  2. TRAMETINIB [Suspect]
     Active Substance: TRAMETINIB
     Dosage: REDUCTION OF TRAMETINIB DOSE BY 25%.
     Route: 065
  3. FLECAINIDE [Concomitant]
     Active Substance: FLECAINIDE
     Indication: Atrial tachycardia
     Dosage: UNK
     Route: 065
  4. FLECAINIDE [Concomitant]
     Active Substance: FLECAINIDE
     Indication: Cardiac hypertrophy
  5. NADOLOL [Concomitant]
     Active Substance: NADOLOL
     Indication: Noonan syndrome
     Dosage: UNK
     Route: 065
  6. NADOLOL [Concomitant]
     Active Substance: NADOLOL
     Indication: Cardiac hypertrophy
  7. NADOLOL [Concomitant]
     Active Substance: NADOLOL
     Indication: Atrial tachycardia
  8. FUROSEMIDE [Concomitant]
     Active Substance: FUROSEMIDE
     Indication: Noonan syndrome
     Dosage: UNK
     Route: 065
  9. FUROSEMIDE [Concomitant]
     Active Substance: FUROSEMIDE
     Indication: Cardiac hypertrophy
  10. CHLOROTHIAZIDE [Concomitant]
     Active Substance: CHLOROTHIAZIDE
     Indication: Noonan syndrome
     Dosage: UNK
     Route: 065
  11. CHLOROTHIAZIDE [Concomitant]
     Active Substance: CHLOROTHIAZIDE
     Indication: Cardiac hypertrophy
  12. AMIODARONE [Concomitant]
     Active Substance: AMIODARONE
     Indication: Noonan syndrome
     Dosage: UNK
     Route: 065
  13. AMIODARONE [Concomitant]
     Active Substance: AMIODARONE
     Indication: Cardiac hypertrophy
  14. AMIODARONE [Concomitant]
     Active Substance: AMIODARONE
     Indication: Atrial tachycardia
  15. VERAPAMIL [Concomitant]
     Active Substance: VERAPAMIL HYDROCHLORIDE
     Indication: Noonan syndrome
     Dosage: UNK
     Route: 065
  16. VERAPAMIL [Concomitant]
     Active Substance: VERAPAMIL HYDROCHLORIDE
     Indication: Cardiac hypertrophy
  17. DILTIAZEM [Concomitant]
     Active Substance: DILTIAZEM
     Indication: Atrial tachycardia
     Dosage: UNK
     Route: 065

REACTIONS (2)
  - Diarrhoea [Recovered/Resolved]
  - Off label use [Unknown]
